FAERS Safety Report 13848637 (Version 1)
Quarter: 2017Q3

REPORT INFORMATION
  Report Type: Spontaneous
  Country: US (occurrence: US)
  Receive Date: 20170809
  Receipt Date: 20170809
  Transmission Date: 20171127
  Serious: No
  Sender: FDA-Public Use
  Company Number: None

PATIENT

DRUGS (2)
  1. PMS-RAMIPRIL/HCTZ [Suspect]
     Active Substance: HYDROCHLOROTHIAZIDE\RAMIPRIL
     Dosage: TYPE - BOTTLE?SIZE - 100 TABLETS
     Route: 048
  2. PMS-RAMIPRIL/HCTZ [Suspect]
     Active Substance: HYDROCHLOROTHIAZIDE\RAMIPRIL
     Dosage: TYPE - BOTTLE?SIZE - 100 TABLETS
     Route: 048

REACTIONS (2)
  - Product label confusion [None]
  - Product selection error [None]
